FAERS Safety Report 15230055 (Version 1)
Quarter: 2018Q3

REPORT INFORMATION
  Report Type: Spontaneous
  Country: US (occurrence: US)
  Receive Date: 20180802
  Receipt Date: 20180802
  Transmission Date: 20181010
  Serious: Yes (Other)
  Sender: FDA-Public Use
  Company Number: US-ACCORD-062883

PATIENT
  Age: 33 Year
  Sex: Female
  Weight: 70.31 kg

DRUGS (14)
  1. DECADRON [Concomitant]
     Active Substance: DEXAMETHASONE
     Indication: CHEMOTHERAPY
     Dosage: 4 MG BID
  2. HERCEPTIN [Suspect]
     Active Substance: TRASTUZUMAB
     Indication: BREAST CANCER
     Dosage: DOSE: 4 MG/KG
  3. WARFARIN [Concomitant]
     Active Substance: WARFARIN
     Indication: PROPHYLAXIS
     Dosage: STRENGTH: 2 MG
  4. TAMOXIFEN [Concomitant]
     Active Substance: TAMOXIFEN
     Dates: start: 201304, end: 201309
  5. LOMOTIL [Concomitant]
     Active Substance: ATROPINE SULFATE\DIPHENOXYLATE HYDROCHLORIDE
     Dosage: PRN
  6. PERCOCET [Concomitant]
     Active Substance: ACETAMINOPHEN\OXYCODONE HYDROCHLORIDE
     Indication: PAIN
     Dates: start: 2013
  7. DOCETAXEL ACCORD [Suspect]
     Active Substance: DOCETAXEL
     Indication: BREAST CANCER
     Dosage: DOSE: 75 MG/M2
     Dates: start: 20130108, end: 20130423
  8. CARBOPLATIN. [Suspect]
     Active Substance: CARBOPLATIN
     Indication: BREAST CANCER
     Dosage: DOSE: 6 AUC
  9. TYLENOL [Concomitant]
     Active Substance: ACETAMINOPHEN
     Dates: start: 2012
  10. XANAX [Concomitant]
     Active Substance: ALPRAZOLAM
     Dates: start: 2013
  11. ATIVAN [Concomitant]
     Active Substance: LORAZEPAM
     Dosage: 1 MG Q6H PRN
     Route: 048
  12. PHENERGAN [Concomitant]
     Active Substance: PROMETHAZINE HYDROCHLORIDE
  13. LETROZOLE. [Concomitant]
     Active Substance: LETROZOLE
     Dates: start: 201310
  14. ZOFRAN [Concomitant]
     Active Substance: ONDANSETRON HYDROCHLORIDE
     Dosage: 8 MG Q6H PRN
     Route: 048

REACTIONS (1)
  - Alopecia [Not Recovered/Not Resolved]
